FAERS Safety Report 5520602-9 (Version None)
Quarter: 2007Q4

REPORT INFORMATION
  Report Type: 
  Country: None (occurrence: None)
  Receive Date: 20071119
  Receipt Date: 20071112
  Transmission Date: 20080405
  Serious: Yes (Congenital Anomaly)
  Sender: FDA-Public Use
  Company Number: FR-SOLVAY-00207034906

PATIENT

DRUGS (4)
  1. PREDNISONE TAB [Concomitant]
     Indication: LUPUS NEPHRITIS
     Dosage: DAILY DOSE:  UNKNOWN
     Route: 064
  2. PERINDOPRIL [Suspect]
     Indication: ILL-DEFINED DISORDER
     Dosage: DAILY DOSE:  UNKNOWN
     Route: 064
  3. HYDROXYCHLOROQUINE SULFATE [Concomitant]
     Indication: LUPUS NEPHRITIS
     Dosage: DAILY DOSE:  UNKNOWN
     Route: 064
  4. MYCOPHENOLATE MOFETIL [Suspect]
     Indication: LUPUS NEPHRITIS
     Dosage: DAILY DOSE: 2000 MILLIGRAM(S)
     Route: 064

REACTIONS (7)
  - ANOTIA [None]
  - CONGENITAL GREAT VESSEL ANOMALY [None]
  - CONGENITAL RENAL DISORDER [None]
  - EXTERNAL AUDITORY CANAL ATRESIA [None]
  - NAIL DISORDER [None]
  - POLYDACTYLY [None]
  - VENTRICULAR SEPTAL DEFECT [None]
